FAERS Safety Report 10709981 (Version 2)
Quarter: 2015Q1

REPORT INFORMATION
  Report Type: Spontaneous
  Country: US (occurrence: US)
  Receive Date: 20150114
  Receipt Date: 20150224
  Transmission Date: 20150721
  Serious: No
  Sender: FDA-Public Use
  Company Number: US-PFIZER INC-2015015126

PATIENT
  Age: 18 Year
  Sex: Female
  Weight: 50 kg

DRUGS (1)
  1. LYRICA [Suspect]
     Active Substance: PREGABALIN
     Indication: FIBROMYALGIA
     Dosage: 225 MG, 2X/DAY
     Route: 048
     Dates: start: 201212, end: 201304

REACTIONS (11)
  - Culture urine positive [Unknown]
  - Back pain [Unknown]
  - Musculoskeletal pain [Unknown]
  - Nausea [Unknown]
  - Chills [Unknown]
  - Insomnia [Unknown]
  - Depressed mood [Unknown]
  - Drug withdrawal syndrome [Unknown]
  - Pain [Unknown]
  - Decreased appetite [Unknown]
  - Neck pain [Unknown]

NARRATIVE: CASE EVENT DATE: 201304
